FAERS Safety Report 12522494 (Version 1)
Quarter: 2016Q3

REPORT INFORMATION
  Report Type: Report from Study
  Country: US (occurrence: US)
  Receive Date: 20160701
  Receipt Date: 20160701
  Transmission Date: 20161109
  Serious: Yes (Hospitalization, Other)
  Sender: FDA-Public Use
  Company Number: PHHO2015US020703

PATIENT
  Age: 76 Year
  Sex: Male
  Weight: 93.6 kg

DRUGS (12)
  1. ONDANSETRON [Concomitant]
     Active Substance: ONDANSETRON
     Indication: NAUSEA
     Dosage: 8 MG, TID (PRN)
     Route: 065
  2. BACTRIM [Concomitant]
     Active Substance: SULFAMETHOXAZOLE\TRIMETHOPRIM
     Indication: PRODUCT USED FOR UNKNOWN INDICATION
     Dosage: 1 DF, (MONDAY, WEDNESDAY AND FRIDAY)
     Route: 065
  3. ASPIRIN. [Concomitant]
     Active Substance: ASPIRIN
     Indication: PRODUCT USED FOR UNKNOWN INDICATION
     Dosage: 81 MG, UNK
     Route: 065
  4. ESZOPICLONE. [Concomitant]
     Active Substance: ESZOPICLONE
     Indication: INSOMNIA
     Dosage: 3 MG, QHS (PRN)
     Route: 048
  5. ODOMZO [Suspect]
     Active Substance: SONIDEGIB
     Indication: ACUTE MYELOID LEUKAEMIA
     Dosage: 200 MG, QOD (ONE TABLET EVERY OTHER DAY D1 TO 28)
     Route: 048
     Dates: start: 20150824, end: 20151106
  6. AZACITIDINE. [Suspect]
     Active Substance: AZACITIDINE
     Indication: ACUTE MYELOID LEUKAEMIA
     Dosage: 150 MG, (ONCE DAILY D1 TO 7 EVERY 28 DAYS)
     Route: 042
     Dates: start: 20150824
  7. OXYCODONE [Concomitant]
     Active Substance: OXYCODONE
     Indication: SEDATION
     Dosage: 1 DF, Q6H
     Route: 065
  8. TRIAMCINOLONE [Concomitant]
     Active Substance: TRIAMCINOLONE
     Indication: RASH
     Dosage: 0.1 %, BID (AS NEEDED)
     Route: 065
  9. FLECAINIDE [Concomitant]
     Active Substance: FLECAINIDE
     Indication: PRODUCT USED FOR UNKNOWN INDICATION
     Dosage: 100 MG, PRN (2 TABLETS)
     Route: 065
  10. FLUCONAZOLE. [Concomitant]
     Active Substance: FLUCONAZOLE
     Indication: PRODUCT USED FOR UNKNOWN INDICATION
     Dosage: 200 MG, BID
     Route: 065
  11. MVI [Concomitant]
     Active Substance: VITAMINS
     Indication: PRODUCT USED FOR UNKNOWN INDICATION
     Route: 065
  12. COMPAZINE [Concomitant]
     Active Substance: PROCHLORPERAZINE MALEATE
     Indication: NAUSEA
     Dosage: 10 MG, TID (AS NEEDED)
     Route: 048

REACTIONS (4)
  - Bone pain [Recovered/Resolved]
  - Febrile neutropenia [Recovered/Resolved]
  - Arthralgia [Recovered/Resolved]
  - Viral infection [Unknown]

NARRATIVE: CASE EVENT DATE: 20151020
